FAERS Safety Report 6255075-4 (Version None)
Quarter: 2009Q3

REPORT INFORMATION
  Report Type: 
  Country: None (occurrence: None)
  Receive Date: 20090702
  Receipt Date: 20090626
  Transmission Date: 20100115
  Serious: Yes (Other)
  Sender: FDA-Public Use
  Company Number: US-GENENTECH-285777

PATIENT
  Sex: Female

DRUGS (3)
  1. AVASTIN [Suspect]
     Indication: NON-SMALL CELL LUNG CANCER
     Dosage: 325 MG, Q3W
     Route: 042
     Dates: start: 20080101
  2. TAXOTERE [Concomitant]
     Indication: NON-SMALL CELL LUNG CANCER
  3. CARBOPLATIN [Concomitant]
     Indication: NON-SMALL CELL LUNG CANCER

REACTIONS (1)
  - HYPERLIPIDAEMIA [None]
